FAERS Safety Report 4456224-0 (Version None)
Quarter: 2004Q3

REPORT INFORMATION
  Report Type: 
  Country: None (occurrence: None)
  Receive Date: 20040920
  Receipt Date: 20040420
  Transmission Date: 20050211
  Serious: Yes (Hospitalization)
  Sender: FDA-Public Use
  Company Number: 04KOR0154

PATIENT
  Age: 53 Year
  Sex: Female

DRUGS (7)
  1. AGGRASTAT [Suspect]
     Indication: MYOCARDIAL INFARCTION
     Dates: start: 20040217, end: 20040218
  2. THEOPHYLLINE [Concomitant]
  3. ACETYLSALICYLIC ACID [Concomitant]
  4. CLOPIDOGREL BISULFATE [Concomitant]
  5. FLUVASTATIN SODIUM [Concomitant]
  6. NADROPARIN CALCIUM [Concomitant]
  7. NICORANDIL [Concomitant]

REACTIONS (1)
  - PALPITATIONS [None]
